FAERS Safety Report 10213836 (Version 1)
Quarter: 2014Q2

REPORT INFORMATION
  Report Type: Spontaneous
  Country: AR (occurrence: None)
  Receive Date: 20140530
  Receipt Date: 20140530
  Transmission Date: 20141212
  Serious: Yes (Death)
  Sender: FDA-Public Use
  Company Number: 2014AR00494

PATIENT
  Sex: 0

DRUGS (5)
  1. CARBOPLATIN [Suspect]
     Indication: CONGENITAL RETINOBLASTOMA
     Dosage: 18.7MG/KG (OR 500 MG/M2 IF WEIGHED MORE THAN 12KG) ON DAY 1
  2. VINCRISTINE [Suspect]
     Indication: CONGENITAL RETINOBLASTOMA
     Dosage: 0.05 MG/KG (OR 1.5 MG/M2 IF WEIGHED MORE THAN 12 KG, MAXIMUM DOSE 2MG
  3. ETOPOSIDE [Suspect]
     Indication: CONGENITAL RETINOBLASTOMA
     Dosage: 3.3 MG/KG/DAY ( OR 100 MG/M2 IF WEIGHED MORE THAN 12 KG) ON DAYS 1 AND 2.
  4. EXTERNAL BEAM RADIOTHERAPY [Suspect]
     Indication: CONGENITAL RETINOBLASTOMA
  5. TOPOTECAN [Suspect]
     Indication: CONGENITAL RETINOBLASTOMA

REACTIONS (2)
  - Acute myeloid leukaemia [None]
  - Disease progression [None]
